FAERS Safety Report 11055958 (Version 1)
Quarter: 2015Q2

REPORT INFORMATION
  Report Type: Spontaneous
  Country: US (occurrence: US)
  Receive Date: 20150422
  Receipt Date: 20150422
  Transmission Date: 20150821
  Serious: No
  Sender: FDA-Public Use
  Company Number: US-TEVA-541134USA

PATIENT
  Sex: Male

DRUGS (1)
  1. ANAGRELIDE [Suspect]
     Active Substance: ANAGRELIDE
     Indication: THROMBOCYTOPENIA
     Dates: start: 20150130

REACTIONS (2)
  - Constipation [Unknown]
  - Abdominal pain upper [Unknown]
